FAERS Safety Report 14930509 (Version 2)
Quarter: 2018Q3

REPORT INFORMATION
  Report Type: Spontaneous
  Country: US (occurrence: US)
  Receive Date: 20180523
  Receipt Date: 20180912
  Transmission Date: 20181010
  Serious: No
  Sender: FDA-Public Use
  Company Number: US-009507513-1805USA007464

PATIENT
  Age: 66 Year
  Sex: Female

DRUGS (2)
  1. ACARBOSE. [Concomitant]
     Active Substance: ACARBOSE
  2. JANUMET [Suspect]
     Active Substance: METFORMIN HYDROCHLORIDE\SITAGLIPTIN PHOSPHATE
     Indication: DIABETES MELLITUS
     Dosage: 50/1000 MG ONCE INTHEMORNINGANDONCEINTHEEVENING(1X50MGSITAGLIPTIN/1000MGMETFORMINHCLTWICE DAILY)
     Route: 048
     Dates: start: 2013

REACTIONS (6)
  - Feeling abnormal [Not Recovered/Not Resolved]
  - Feeling abnormal [Not Recovered/Not Resolved]
  - Bacterial infection [Unknown]
  - Drug dose omission [Unknown]
  - Somnolence [Not Recovered/Not Resolved]
  - Blood glucose increased [Not Recovered/Not Resolved]

NARRATIVE: CASE EVENT DATE: 201805
